FAERS Safety Report 23986898 (Version 1)
Quarter: 2024Q2

REPORT INFORMATION
  Report Type: Spontaneous
  Country: GB (occurrence: GB)
  Receive Date: 20240618
  Receipt Date: 20240618
  Transmission Date: 20240717
  Serious: Yes (Hospitalization, Other)
  Sender: FDA-Public Use
  Company Number: None

PATIENT
  Sex: Male

DRUGS (2)
  1. ARIPIPRAZOLE [Suspect]
     Active Substance: ARIPIPRAZOLE
     Indication: Depression
     Dosage: 5MG OD MANE
     Route: 065
  2. VORTIOXETINE [Concomitant]
     Active Substance: VORTIOXETINE
     Indication: Major depression
     Dosage: UNKNOWN
     Route: 065

REACTIONS (7)
  - Adverse drug reaction [Recovering/Resolving]
  - Rash [Unknown]
  - Dyspnoea [Unknown]
  - Liver function test abnormal [Unknown]
  - Renal impairment [Unknown]
  - Urinary tract infection [Unknown]
  - Pneumonia [Unknown]
